FAERS Safety Report 8957061 (Version 1)
Quarter: 2012Q4

REPORT INFORMATION
  Report Type: Spontaneous
  Country: US (occurrence: None)
  Receive Date: 20121205
  Receipt Date: 20121205
  Transmission Date: 20130627
  Serious: Yes (Other)
  Sender: FDA-Public Use
  Company Number: None

PATIENT
  Sex: Male
  Weight: 136.08 kg

DRUGS (1)
  1. TRIAMCINILONE 40MG/ML NECC [Suspect]
     Indication: MACULAR EDEMA
     Dosage: 0.1ml once Ophthalmic
     Route: 047
     Dates: start: 20120706, end: 20120706

REACTIONS (1)
  - Endophthalmitis [None]
